FAERS Safety Report 25974050 (Version 2)
Quarter: 2025Q4

REPORT INFORMATION
  Report Type: Spontaneous
  Country: CA (occurrence: CA)
  Receive Date: 20251029
  Receipt Date: 20251126
  Transmission Date: 20260118
  Serious: Yes (Life-Threatening, Hospitalization, Other)
  Sender: AUROBINDO
  Company Number: CA-MLMSERVICE-20241125-PI269414-00180-1

PATIENT
  Age: 7 Decade
  Sex: Male

DRUGS (4)
  1. TRANDOLAPRIL [Suspect]
     Active Substance: TRANDOLAPRIL
     Indication: Hypertension
     Dosage: 4 MILLIGRAM, ONCE A DAY
  2. INDOMETHACIN [Suspect]
     Active Substance: INDOMETHACIN
     Indication: Headache
     Dosage: 25 MILLIGRAM, 3 TIMES A DAY
  3. INDOMETHACIN [Suspect]
     Active Substance: INDOMETHACIN
     Dosage: 75 MILLIGRAM
  4. PANTOPRAZOLE [Concomitant]
     Active Substance: PANTOPRAZOLE
     Indication: Product used for unknown indication
     Dosage: 40 MILLIGRAM, ONCE A DAY

REACTIONS (4)
  - Hypertensive encephalopathy [Recovered/Resolved]
  - Drug interaction [Recovered/Resolved]
  - Condition aggravated [Recovered/Resolved]
  - Confusional state [Recovered/Resolved]
